FAERS Safety Report 13257802 (Version 1)
Quarter: 2017Q1

REPORT INFORMATION
  Report Type: Report from Study
  Country: None (occurrence: CA)
  Receive Date: 20170221
  Receipt Date: 20170221
  Transmission Date: 20170428
  Serious: Yes (Death)
  Sender: FDA-Public Use
  Company Number: CA-ABBVIE-17K-028-1882387-00

PATIENT
  Age: 68 Year
  Sex: Female

DRUGS (1)
  1. HUMIRA [Suspect]
     Active Substance: ADALIMUMAB
     Indication: RHEUMATOID ARTHRITIS
     Route: 058
     Dates: start: 20161111, end: 2017

REACTIONS (4)
  - Multiple organ dysfunction syndrome [Fatal]
  - Cough [Fatal]
  - Malaise [Fatal]
  - Balance disorder [Fatal]

NARRATIVE: CASE EVENT DATE: 201702
